FAERS Safety Report 5542517-2 (Version None)
Quarter: 2007Q4

REPORT INFORMATION
  Report Type: 
  Country: None (occurrence: None)
  Receive Date: 20071123
  Receipt Date: 20070425
  Transmission Date: 20080405
  Serious: Yes (Other)
  Sender: FDA-Public Use
  Company Number: US-JNJFOC-20070406269

PATIENT
  Age: 81 Year
  Sex: Female

DRUGS (7)
  1. LEVAQUIN [Suspect]
     Indication: ABDOMINAL PAIN
     Dates: start: 20070315, end: 20070315
  2. PROPANOLOL (PROPRANOLOL) TABLETS [Concomitant]
  3. WARFARIN (WARFARIN) TABLETS [Concomitant]
  4. ACETAMINOPHEN (PARACETAMOL) UNSPECIFIED [Concomitant]
  5. DIGOXIN (DIGOXIN) UNSPECIFIED [Concomitant]
  6. SIMVASTATIN (SIMVASTATIN) UNSPECIFIED [Concomitant]
  7. PARVOCET (OXYCOCET) UNSPECIFIED [Concomitant]

REACTIONS (1)
  - ANAPHYLACTIC REACTION [None]
